FAERS Safety Report 9112236 (Version 1)
Quarter: 2013Q1

REPORT INFORMATION
  Report Type: Spontaneous
  Country: US (occurrence: US)
  Receive Date: 20130219
  Receipt Date: 20130219
  Transmission Date: 20140127
  Serious: No
  Sender: FDA-Public Use
  Company Number: US-BRISTOL-MYERS SQUIBB COMPANY-16700445

PATIENT
  Age: 51 Year
  Sex: Female

DRUGS (18)
  1. ORENCIA [Suspect]
     Route: 042
  2. SYNTHROID [Concomitant]
  3. CYTOMEL [Concomitant]
  4. PLAQUENIL [Concomitant]
  5. METHOTREXATE [Concomitant]
     Dosage: 3-2.5 MG / WEEK
  6. AMBIEN [Concomitant]
  7. CYMBALTA [Concomitant]
  8. WELLBUTRIN [Concomitant]
  9. PREDNISONE [Concomitant]
  10. HYDROXYCHLOROQUINE [Concomitant]
  11. PROVIGIL [Concomitant]
     Dosage: EXCEEDED:200MG
  12. FISH OIL [Concomitant]
  13. ZANTAC [Concomitant]
  14. GUAIFENESIN [Concomitant]
  15. GLUCOSAMINE SULFATE [Concomitant]
  16. ALEVE [Concomitant]
  17. MAGNESIUM [Concomitant]
  18. DHEA [Concomitant]

REACTIONS (1)
  - Hot flush [Unknown]
